FAERS Safety Report 4579955-0 (Version None)
Quarter: 2005Q1

REPORT INFORMATION
  Report Type: 
  Country: None (occurrence: None)
  Receive Date: 20050210
  Receipt Date: 20050202
  Transmission Date: 20050727
  Serious: Yes (Death, Life-Threatening)
  Sender: FDA-Public Use
  Company Number: FRWYE369225JAN05

PATIENT
  Age: 63 Year
  Sex: Male

DRUGS (7)
  1. GEMTUZUMAB OZOGAMICIN (GEMTUZUMAB OZOGAMICIN, INJECTION) [Suspect]
     Indication: ACUTE MYELOID LEUKAEMIA
     Dosage: 4.8 MG 1X PER 1 DAY INTRAVENOUS
     Route: 042
     Dates: start: 20050104, end: 20050104
  2. CYTARABINE [Concomitant]
  3. ETOPOSIDE [Concomitant]
  4. IDARUBICIN HCL [Concomitant]
  5. AMIKLIN (AMIKACIN) [Concomitant]
  6. FORTUM (CEFTAZIDIME PENTAHYDRATE) [Concomitant]
  7. VANCOMYCIN [Concomitant]

REACTIONS (3)
  - MULTI-ORGAN FAILURE [None]
  - RENAL FAILURE ACUTE [None]
  - VENOOCCLUSIVE LIVER DISEASE [None]
